FAERS Safety Report 6909308-9 (Version None)
Quarter: 2010Q3

REPORT INFORMATION
  Report Type: 
  Country: None (occurrence: None)
  Receive Date: 20100805
  Receipt Date: 20100727
  Transmission Date: 20110219
  Serious: Yes (Hospitalization, Other)
  Sender: FDA-Public Use
  Company Number: US-JNJCH-2009031683

PATIENT
  Age: 2 Year

DRUGS (1)
  1. ASPIRIN [Suspect]
     Indication: UPPER RESPIRATORY TRACT INFECTION
     Dosage: TEXT:TOTAL OF 126 GRAINS IN 3 DAYS; EVERY 2HR
     Route: 048

REACTIONS (2)
  - THERAPEUTIC AGENT TOXICITY [None]
  - WRONG DRUG ADMINISTERED [None]
